FAERS Safety Report 4742082-3 (Version None)
Quarter: 2005Q3

REPORT INFORMATION
  Report Type: 
  Country: None (occurrence: None)
  Receive Date: 20050808
  Receipt Date: 20050801
  Transmission Date: 20060218
  Serious: Yes (Hospitalization)
  Sender: FDA-Public Use
  Company Number: 2004-11-0624

PATIENT
  Age: 42 Year
  Sex: Female
  Weight: 58 kg

DRUGS (9)
  1. INTRON A [Suspect]
     Indication: HEPATITIS C
     Dosage: 6 MU QD-TIW INTRAMUSCULAR
     Route: 030
     Dates: start: 20040916, end: 20040929
  2. INTRON A [Suspect]
     Indication: HEPATITIS C
     Dosage: 6 MU QD-TIW INTRAMUSCULAR
     Route: 030
     Dates: start: 20040916, end: 20041020
  3. INTRON A [Suspect]
     Indication: HEPATITIS C
     Dosage: 6 MU QD-TIW INTRAMUSCULAR
     Route: 030
     Dates: start: 20041001, end: 20041020
  4. REBETOL [Suspect]
     Indication: HEPATITIS C
     Dosage: 600 MG ORAL
     Route: 048
     Dates: start: 20040916, end: 20041020
  5. URSO TABLETS [Concomitant]
  6. SELBEX CAPSULES [Concomitant]
  7. SODIUM FERROUS CITRATE TABLETS [Concomitant]
  8. MANIDIPINE TABLETS [Concomitant]
  9. MAGNESIUM OXIDE GRANULES [Concomitant]

REACTIONS (6)
  - BRAIN NEOPLASM [None]
  - DIPLOPIA [None]
  - EYE DISORDER [None]
  - EYELID PTOSIS [None]
  - IIIRD NERVE PARALYSIS [None]
  - INTRACRANIAL ANEURYSM [None]
